FAERS Safety Report 20431982 (Version 1)
Quarter: 2022Q1

REPORT INFORMATION
  Report Type: Spontaneous
  Country: CH (occurrence: CH)
  Receive Date: 20220204
  Receipt Date: 20220204
  Transmission Date: 20220423
  Serious: Yes (Hospitalization)
  Sender: FDA-Public Use
  Company Number: None

PATIENT
  Age: 22 Year
  Sex: Female
  Weight: 53.8 kg

DRUGS (1)
  1. SULFASALAZINE [Suspect]
     Active Substance: SULFASALAZINE
     Indication: Synovitis
     Dosage: 1000 MG, 2X/DAY
     Route: 048
     Dates: start: 202107, end: 20211016

REACTIONS (13)
  - Drug reaction with eosinophilia and systemic symptoms [Recovering/Resolving]
  - Pyrexia [Recovered/Resolved]
  - Abdominal pain [Recovering/Resolving]
  - Rash pruritic [Recovering/Resolving]
  - Stomatitis [Recovering/Resolving]
  - Rash maculo-papular [Recovering/Resolving]
  - Leukocytosis [Recovering/Resolving]
  - Eosinophilia [Recovered/Resolved]
  - Lymphocytosis [Recovering/Resolving]
  - Cholestasis [Recovering/Resolving]
  - Polyglandular autoimmune syndrome type II [Recovering/Resolving]
  - Off label use [Unknown]
  - Drug effective for unapproved indication [Unknown]

NARRATIVE: CASE EVENT DATE: 20210701
